FAERS Safety Report 9890385 (Version 1)
Quarter: 2014Q1

REPORT INFORMATION
  Report Type: Report from Study
  Country: US (occurrence: US)
  Receive Date: 20140212
  Receipt Date: 20140212
  Transmission Date: 20141002
  Serious: Yes (Other)
  Sender: FDA-Public Use
  Company Number: US-ROCHE-1343023

PATIENT
  Sex: Male
  Weight: 41.71 kg

DRUGS (3)
  1. NUTROPIN AQ [Suspect]
     Indication: GROWTH HORMONE DEFICIENCY
     Route: 058
     Dates: end: 20130927
  2. NUTROPIN AQ [Suspect]
     Route: 058
     Dates: start: 20130927
  3. PERIACTIN [Concomitant]

REACTIONS (3)
  - Decreased appetite [Unknown]
  - Insulin-like growth factor decreased [Unknown]
  - Drug dose omission [Unknown]
